FAERS Safety Report 25451775 (Version 1)
Quarter: 2025Q2

REPORT INFORMATION
  Report Type: Spontaneous
  Country: US (occurrence: US)
  Receive Date: 20250618
  Receipt Date: 20250618
  Transmission Date: 20250717
  Serious: No
  Sender: SANOFI AVENTIS
  Company Number: US-SA-2025SA171696

PATIENT
  Sex: Female
  Weight: 57.73 kg

DRUGS (7)
  1. DUPIXENT [Suspect]
     Active Substance: DUPILUMAB
     Indication: Dermatitis atopic
     Dosage: 300 MG, QOW
     Route: 058
  2. AQUAPHOR [MINERAL OIL LIGHT;PARAFFIN NOS;PETROLATUM;WOOL ALCOHOLS] [Concomitant]
  3. CALCIUM CITRATE\CHOLECALCIFEROL [Concomitant]
     Active Substance: CALCIUM CITRATE\CHOLECALCIFEROL
  4. EUCERIN [SOFT SOAP] [Concomitant]
  5. HYDROXYZINE HYDROCHLORIDE [Concomitant]
     Active Substance: HYDROXYZINE HYDROCHLORIDE
  6. VITAMINS NOS [Concomitant]
     Active Substance: VITAMINS
  7. VTAMA [Concomitant]
     Active Substance: TAPINAROF

REACTIONS (4)
  - Skin irritation [Unknown]
  - Rash pruritic [Unknown]
  - Muscle spasms [Unknown]
  - Dry eye [Unknown]
